FAERS Safety Report 5514159-6 (Version None)
Quarter: 2007Q4

REPORT INFORMATION
  Report Type: 
  Country: None (occurrence: None)
  Receive Date: 20071113
  Receipt Date: 20071102
  Transmission Date: 20080405
  Serious: Yes (Hospitalization)
  Sender: FDA-Public Use
  Company Number: JP-JNJFOC-20071101329

PATIENT
  Age: 8 Decade
  Sex: Male

DRUGS (1)
  1. ITRIZOLE [Suspect]
     Indication: DIABETES MELLITUS
     Route: 048

REACTIONS (2)
  - DRUG ERUPTION [None]
  - OFF LABEL USE [None]
